FAERS Safety Report 9552023 (Version 3)
Quarter: 2014Q1

REPORT INFORMATION
  Report Type: Spontaneous
  Country: US (occurrence: None)
  Receive Date: 20130923
  Receipt Date: 20140306
  Transmission Date: 20141002
  Serious: Yes (Death, Other)
  Sender: FDA-Public Use
  Company Number: ADR-2013-01670

PATIENT
  Sex: Male

DRUGS (4)
  1. HYDROMORPHONE [Suspect]
  2. BUPIVACAINE (30 MG/ML) [Suspect]
  3. BACLOFEN [Suspect]
     Indication: CANCER PAIN
  4. KETAMINE [Suspect]

REACTIONS (4)
  - Death [None]
  - Non-small cell lung cancer [None]
  - Device connection issue [None]
  - Device damage [None]
